FAERS Safety Report 4499202-8 (Version None)
Quarter: 2004Q4

REPORT INFORMATION
  Report Type: 
  Country: None (occurrence: None)
  Receive Date: 20041111
  Receipt Date: 20041027
  Transmission Date: 20050328
  Serious: Yes (Death)
  Sender: FDA-Public Use
  Company Number: US-GLAXOSMITHKLINE-A0531568A

PATIENT
  Age: 82 Year
  Sex: Female

DRUGS (2)
  1. PAXIL [Suspect]
     Indication: OBSESSIVE-COMPULSIVE DISORDER
     Dosage: 50MG PER DAY
     Route: 048
     Dates: start: 20020101, end: 20020301
  2. REMERON [Concomitant]

REACTIONS (3)
  - AGGRESSION [None]
  - DEATH [None]
  - MANIA [None]
